FAERS Safety Report 24543442 (Version 2)
Quarter: 2024Q4

REPORT INFORMATION
  Report Type: Spontaneous
  Country: US (occurrence: US)
  Receive Date: 20241024
  Receipt Date: 20241129
  Transmission Date: 20250114
  Serious: Yes (Hospitalization, Other)
  Sender: JOHNSON AND JOHNSON
  Company Number: US-JNJFOC-20241061022

PATIENT
  Sex: Male

DRUGS (5)
  1. XARELTO [Suspect]
     Active Substance: RIVAROXABAN
     Indication: Product used for unknown indication
     Route: 048
  2. XARELTO [Suspect]
     Active Substance: RIVAROXABAN
     Route: 048
  3. PLAVIX [Concomitant]
     Active Substance: CLOPIDOGREL BISULFATE
  4. ENALAPRIL [Concomitant]
     Active Substance: ENALAPRIL
  5. CARVEDILOL [Concomitant]
     Active Substance: CARVEDILOL

REACTIONS (3)
  - Bladder cancer [Recovered/Resolved]
  - Blood urine present [Recovered/Resolved]
  - Peripheral arterial occlusive disease [Unknown]
